FAERS Safety Report 14140920 (Version 2)
Quarter: 2017Q4

REPORT INFORMATION
  Report Type: Spontaneous
  Country: IR (occurrence: IR)
  Receive Date: 20171030
  Receipt Date: 20171108
  Transmission Date: 20180321
  Serious: Yes (Other)
  Sender: FDA-Public Use
  Company Number: IR-SUN PHARMACEUTICAL INDUSTRIES LTD-2017R1-153567

PATIENT
  Age: 53 Year
  Sex: Male

DRUGS (2)
  1. SUTENT [Interacting]
     Active Substance: SUNITINIB MALATE
     Indication: RENAL CELL CARCINOMA
     Dosage: 50 MG SUNITINIB (SUTENT) ONCE A DAY FOR 4 WEEKS FOLLOWED BY 2 WEEKS
     Route: 065
     Dates: start: 201610
  2. ZOLEDRONIC [Suspect]
     Active Substance: ZOLEDRONIC ACID
     Indication: PRODUCT USED FOR UNKNOWN INDICATION
     Dosage: TWO TIMES
     Route: 042

REACTIONS (2)
  - Drug interaction [Unknown]
  - Osteonecrosis of jaw [Recovering/Resolving]
